FAERS Safety Report 19160063 (Version 1)
Quarter: 2021Q2

REPORT INFORMATION
  Report Type: Report from Study
  Country: US (occurrence: US)
  Receive Date: 20210420
  Receipt Date: 20210420
  Transmission Date: 20210717
  Serious: No
  Sender: FDA-Public Use
  Company Number: NVSC2021US087873

PATIENT
  Sex: Female

DRUGS (1)
  1. AFINITOR [Suspect]
     Active Substance: EVEROLIMUS
     Indication: PRODUCT USED FOR UNKNOWN INDICATION
     Dosage: 10 MG, QD
     Route: 048

REACTIONS (6)
  - Low density lipoprotein increased [Unknown]
  - Asthenia [Unknown]
  - Restless legs syndrome [Unknown]
  - Myalgia [Unknown]
  - Peripheral swelling [Unknown]
  - Fluid retention [Unknown]
